FAERS Safety Report 12964372 (Version 2)
Quarter: 2017Q1

REPORT INFORMATION
  Report Type: Spontaneous
  Country: US (occurrence: US)
  Receive Date: 20161122
  Receipt Date: 20170301
  Transmission Date: 20170428
  Serious: Yes (Hospitalization)
  Sender: FDA-Public Use
  Company Number: US-PFIZER INC-2016542169

PATIENT
  Age: 62 Year
  Sex: Male
  Weight: 100 kg

DRUGS (7)
  1. CLOPIDOGREL [Concomitant]
     Active Substance: CLOPIDOGREL BISULFATE
     Dosage: 75 MG, 1X/DAY
     Route: 048
     Dates: start: 2005
  2. PRAVASTATIN. [Concomitant]
     Active Substance: PRAVASTATIN
     Dosage: 20 MG, 1X/DAY
     Route: 048
     Dates: start: 2005
  3. MELOXICAM. [Concomitant]
     Active Substance: MELOXICAM
     Dosage: 50 MG, 1X/DAY
     Dates: start: 2016
  4. LISINOPRIL. [Concomitant]
     Active Substance: LISINOPRIL
     Dosage: 10 MG, 1X/DAY
     Route: 048
     Dates: start: 2014
  5. ALLOPURINOL. [Concomitant]
     Active Substance: ALLOPURINOL
     Dosage: 300 MG, 1X/DAY
     Dates: start: 2000
  6. VIAGRA [Suspect]
     Active Substance: SILDENAFIL CITRATE
     Indication: ERECTILE DYSFUNCTION
     Dosage: 100 MG ON FRIDAY OR SATURDAY 1 PER WEEK
  7. ATENOLOL. [Concomitant]
     Active Substance: ATENOLOL
     Dosage: 25 MG, 1X/DAY
     Dates: start: 2014

REACTIONS (4)
  - Sinus congestion [Recovered/Resolved]
  - Drug ineffective [Not Recovered/Not Resolved]
  - Product quality issue [Not Recovered/Not Resolved]
  - Paraesthesia [Recovered/Resolved]

NARRATIVE: CASE EVENT DATE: 2016
